FAERS Safety Report 4395410-5 (Version None)
Quarter: 2004Q3

REPORT INFORMATION
  Report Type: 
  Country: None (occurrence: None)
  Receive Date: 20040707
  Receipt Date: 20040623
  Transmission Date: 20050211
  Serious: Yes (Hospitalization)
  Sender: FDA-Public Use
  Company Number: 04P-062-0264797-00

PATIENT
  Age: 64 Year
  Sex: Male
  Weight: 65 kg

DRUGS (4)
  1. KALETRA [Suspect]
     Indication: HIV INFECTION
     Dosage: 2 CAPSULE, 3 IN 1 D, PER ORAL
     Route: 048
     Dates: start: 20040211, end: 20040402
  2. LAMIVUDINE [Concomitant]
  3. TENOFOVIR [Concomitant]
  4. COTRIMOXAZOL [Concomitant]

REACTIONS (10)
  - LUNG INFILTRATION [None]
  - LYMPHADENOPATHY [None]
  - MYCOBACTERIUM KANSASII INFECTION [None]
  - NASOPHARYNGITIS [None]
  - PERIPHERAL EMBOLISM [None]
  - PNEUMONIA [None]
  - PULMONARY ARTERY THROMBOSIS [None]
  - SPUTUM CULTURE POSITIVE [None]
  - TUBERCULOSIS [None]
  - VENOUS THROMBOSIS LIMB [None]
